FAERS Safety Report 19750235 (Version 1)
Quarter: 2021Q3

REPORT INFORMATION
  Report Type: Spontaneous
  Country: US (occurrence: US)
  Receive Date: 20210826
  Receipt Date: 20210826
  Transmission Date: 20211014
  Serious: Yes (Other)
  Sender: FDA-Public Use
  Company Number: US-CELGENEUS-USA-20210804862

PATIENT
  Age: 75 Year
  Sex: Male

DRUGS (4)
  1. GABAPENTIN. [Suspect]
     Active Substance: GABAPENTIN
     Indication: PRODUCT USED FOR UNKNOWN INDICATION
     Route: 065
     Dates: start: 2021
  2. THALOMID [Suspect]
     Active Substance: THALIDOMIDE
     Indication: OFF LABEL USE
  3. THALOMID [Suspect]
     Active Substance: THALIDOMIDE
     Indication: XANTHOGRANULOMA
     Dosage: 100 MILLIGRAM
     Route: 048
     Dates: start: 20210722
  4. THALOMID [Suspect]
     Active Substance: THALIDOMIDE
     Indication: ROSAI-DORFMAN SYNDROME
     Dosage: 100 MILLIGRAM
     Route: 048
     Dates: start: 20210722

REACTIONS (5)
  - Laboratory test abnormal [Unknown]
  - General physical health deterioration [Unknown]
  - Liver disorder [Recovering/Resolving]
  - Pulmonary oedema [Unknown]
  - Protein total decreased [Unknown]

NARRATIVE: CASE EVENT DATE: 20210803
